FAERS Safety Report 8108084-4 (Version None)
Quarter: 2012Q1

REPORT INFORMATION
  Report Type: 
  Country: None (occurrence: None)
  Receive Date: 20120202
  Receipt Date: 20120130
  Transmission Date: 20120608
  Serious: Yes (Hospitalization, Other)
  Sender: FDA-Public Use
  Company Number: US-PFIZER INC-2012014016

PATIENT
  Sex: Female
  Weight: 61.2 kg

DRUGS (3)
  1. PROCARDIA [Suspect]
     Dosage: 60 MG, DAILY
     Route: 048
  2. PROCARDIA [Suspect]
     Dosage: 30 MG, DAILY
     Route: 048
  3. PROCARDIA [Suspect]
     Indication: HYPERTENSION
     Dosage: 90 MG, DAILY
     Route: 048

REACTIONS (3)
  - ARTERIAL OCCLUSIVE DISEASE [None]
  - FEELING ABNORMAL [None]
  - MYOCARDIAL INFARCTION [None]
